FAERS Safety Report 9490576 (Version 1)
Quarter: 2013Q3

REPORT INFORMATION
  Report Type: Spontaneous
  Country: FR (occurrence: None)
  Receive Date: 20130826
  Receipt Date: 20130826
  Transmission Date: 20140515
  Serious: Yes (Hospitalization)
  Sender: FDA-Public Use
  Company Number: ABR_01083_2013

PATIENT
  Age: 76 Year
  Sex: Male

DRUGS (3)
  1. ERYTHROMYCIN [Suspect]
     Route: 042
     Dates: start: 20130517, end: 20130524
  2. GENTAMICIN SULPHATE [Suspect]
     Dosage: (DF)
     Route: 042
     Dates: start: 20130517, end: 20130522
  3. CUBICIN [Suspect]
     Indication: PRODUCT USED FOR UNKNOWN INDICATION
     Route: 042
     Dates: start: 20130517, end: 20130522

REACTIONS (2)
  - Systemic candida [None]
  - Rash erythematous [None]
